FAERS Safety Report 4780490-5 (Version None)
Quarter: 2005Q3

REPORT INFORMATION
  Report Type: 
  Country: None (occurrence: None)
  Receive Date: 20050926
  Receipt Date: 20050914
  Transmission Date: 20060218
  Serious: Yes (Death)
  Sender: FDA-Public Use
  Company Number: 2005129314

PATIENT
  Age: 44 Year
  Sex: 0

DRUGS (3)
  1. ALPRAZOLAM [Suspect]
     Indication: ILL-DEFINED DISORDER
     Dates: end: 20040101
  2. AMLODIPINE [Suspect]
     Indication: ILL-DEFINED DISORDER
     Dates: end: 20040101
  3. LISINOPRIL [Suspect]
     Indication: ILL-DEFINED DISORDER
     Dates: end: 20040101

REACTIONS (2)
  - DRUG TOXICITY [None]
  - MULTIPLE DRUG OVERDOSE [None]
